FAERS Safety Report 8489700-4 (Version None)
Quarter: 2012Q3

REPORT INFORMATION
  Report Type: 
  Country: None (occurrence: None)
  Receive Date: 20120705
  Receipt Date: 20120625
  Transmission Date: 20120928
  Serious: Yes (Other)
  Sender: FDA-Public Use
  Company Number: US-GLAXOSMITHKLINE-A0983240A

PATIENT
  Age: 22 Year
  Sex: Female

DRUGS (3)
  1. LETAIRIS [Suspect]
     Indication: PULMONARY HYPERTENSION
     Dosage: 5MG UNKNOWN
     Route: 048
     Dates: start: 20100803
  2. UNKNOWN [Concomitant]
  3. FLOLAN [Suspect]
     Indication: PRODUCT USED FOR UNKNOWN INDICATION
     Route: 065

REACTIONS (6)
  - FLUSHING [None]
  - PAIN IN JAW [None]
  - RASH [None]
  - MUSCULOSKELETAL PAIN [None]
  - DIARRHOEA [None]
  - COLITIS ULCERATIVE [None]
